FAERS Safety Report 6216483-0 (Version None)
Quarter: 2009Q2

REPORT INFORMATION
  Report Type: 
  Country: None (occurrence: None)
  Receive Date: 20090605
  Receipt Date: 20090603
  Transmission Date: 20091009
  Serious: Yes (Other)
  Sender: FDA-Public Use
  Company Number: US-MERCK-0905USA03328

PATIENT
  Sex: Female

DRUGS (5)
  1. MEVACOR [Suspect]
     Route: 048
     Dates: start: 20090401
  2. MEVACOR [Suspect]
     Route: 048
  3. PLAVIX [Suspect]
     Route: 065
     Dates: start: 20090428
  4. CYCLOSPORINE [Concomitant]
     Route: 065
     Dates: start: 20090401
  5. FLUCONAZOLE [Concomitant]
     Route: 065
     Dates: start: 20090401

REACTIONS (3)
  - BONE MARROW DISORDER [None]
  - DRUG INTERACTION [None]
  - RHABDOMYOLYSIS [None]
